FAERS Safety Report 5409354-0 (Version None)
Quarter: 2007Q3

REPORT INFORMATION
  Report Type: 
  Country: None (occurrence: None)
  Receive Date: 20070807
  Receipt Date: 20070807
  Transmission Date: 20080115
  Serious: No
  Sender: FDA-Public Use
  Company Number: None

PATIENT
  Age: 46 Year
  Sex: Female
  Weight: 54.4316 kg

DRUGS (2)
  1. AMBIEN [Suspect]
     Indication: INSOMNIA
     Dosage: 1 TABLET AS NEEDED PO
     Route: 048
     Dates: start: 20020410, end: 20060524
  2. AMBIEN [Suspect]
     Indication: MIDDLE INSOMNIA
     Dosage: 1 TABLET AS NEEDED PO
     Route: 048
     Dates: start: 20020410, end: 20060524

REACTIONS (7)
  - ABNORMAL SLEEP-RELATED EVENT [None]
  - ALCOHOL USE [None]
  - AMNESIA [None]
  - HALLUCINATION [None]
  - IMPAIRED DRIVING ABILITY [None]
  - LEGAL PROBLEM [None]
  - SOMNAMBULISM [None]
